FAERS Safety Report 20658478 (Version 1)
Quarter: 2022Q1

REPORT INFORMATION
  Report Type: Spontaneous
  Country: US (occurrence: None)
  Receive Date: 20220330
  Receipt Date: 20220330
  Transmission Date: 20220424
  Serious: No
  Sender: FDA-Public Use
  Company Number: None

PATIENT
  Age: 62 Year
  Sex: Female
  Weight: 51.75 kg

DRUGS (1)
  1. SOTROVIMAB [Suspect]
     Active Substance: SOTROVIMAB
     Indication: COVID-19
     Dosage: 500MG ONCE INTRAVENOUS DRIP?
     Route: 041
     Dates: start: 20220330, end: 20220330

REACTIONS (1)
  - HCoV-229E infection [None]

NARRATIVE: CASE EVENT DATE: 20220330
